FAERS Safety Report 17642088 (Version 2)
Quarter: 2020Q2

REPORT INFORMATION
  Report Type: Spontaneous
  Country: DE (occurrence: DE)
  Receive Date: 20200408
  Receipt Date: 20200415
  Transmission Date: 20200713
  Serious: Yes (Hospitalization)
  Sender: FDA-Public Use
  Company Number: DE-AMGEN-DEUSP2020055189

PATIENT
  Age: 65 Year
  Sex: Female
  Weight: 62 kg

DRUGS (5)
  1. NON-PEGYLATED LIPOSOMAL DOXORUBICIN HYDROCHL. [Suspect]
     Active Substance: DOXORUBICIN HYDROCHLORIDE
     Indication: BREAST CANCER
     Dosage: 100 MILLIGRAM
     Route: 042
     Dates: start: 20190207, end: 20190613
  2. XGEVA [Suspect]
     Active Substance: DENOSUMAB
     Indication: METASTASES TO BONE
     Dosage: 120 MILLIGRAM, Q4WK
     Route: 058
     Dates: start: 20160515
  3. ERIBULIN [Concomitant]
     Active Substance: ERIBULIN
     Indication: BREAST CANCER METASTATIC
     Dosage: 1.63 MILLIGRAM, Q3WK
     Route: 042
  4. LAPATINIB [Concomitant]
     Active Substance: LAPATINIB
     Indication: BREAST CANCER
     Dosage: 750 MILLIGRAM
     Route: 048
     Dates: start: 20190411, end: 20190828
  5. VINORELBINE [Concomitant]
     Active Substance: VINORELBINE TARTRATE
     Indication: BREAST CANCER METASTATIC
     Dosage: 42 MILLIGRAM, QWK
     Route: 042

REACTIONS (2)
  - Post procedural infection [Unknown]
  - Tooth extraction [Unknown]

NARRATIVE: CASE EVENT DATE: 2019
